FAERS Safety Report 9087567 (Version 1)
Quarter: 2013Q1

REPORT INFORMATION
  Report Type: Report from Study
  Country: US (occurrence: US)
  Receive Date: 20130130
  Receipt Date: 20130130
  Transmission Date: 20140127
  Serious: No
  Sender: FDA-Public Use
  Company Number: US-ABBOTT-12P-163-0985962-00

PATIENT
  Age: 60 Year
  Sex: Female

DRUGS (5)
  1. HUMIRA [Suspect]
     Indication: PSORIASIS
     Dates: start: 20120822
  2. LASIX [Concomitant]
     Indication: FLUID RETENTION
  3. SYNTHROID [Concomitant]
     Indication: HYPOTHYROIDISM
  4. COREG [Concomitant]
     Indication: BLOOD PRESSURE
  5. CELEXA [Concomitant]
     Indication: ANXIETY

REACTIONS (2)
  - Injection site pain [Recovered/Resolved]
  - Injection site haemorrhage [Not Recovered/Not Resolved]
